FAERS Safety Report 11613526 (Version 3)
Quarter: 2017Q3

REPORT INFORMATION
  Report Type: Spontaneous
  Country: CH (occurrence: CH)
  Receive Date: 20151008
  Receipt Date: 20170824
  Transmission Date: 20171127
  Serious: Yes (Other)
  Sender: FDA-Public Use
  Company Number: CH-ARIAD-2015CH005341

PATIENT
  Age: 39 Year
  Sex: Male

DRUGS (7)
  1. ICLUSIG [Suspect]
     Active Substance: PONATINIB
     Dosage: 45 MG, QD
     Route: 048
     Dates: start: 201410, end: 201507
  2. ICLUSIG [Suspect]
     Active Substance: PONATINIB
     Indication: ACUTE LYMPHOCYTIC LEUKAEMIA
     Dosage: 30 MG, QD
     Route: 048
     Dates: start: 201302, end: 201303
  3. ICLUSIG [Suspect]
     Active Substance: PONATINIB
     Dosage: 45 MG, QD
     Route: 048
     Dates: start: 201509
  4. ASA [Concomitant]
     Active Substance: ASPIRIN
     Indication: CARDIOVASCULAR EVENT PROPHYLAXIS
     Dosage: 100 MG, QD
  5. ICLUSIG [Suspect]
     Active Substance: PONATINIB
     Dosage: 45 MG, QD
     Route: 048
     Dates: start: 201303, end: 201403
  6. ICLUSIG [Suspect]
     Active Substance: PONATINIB
     Dosage: 15 MG, QD
     Route: 048
     Dates: start: 201403, end: 201409
  7. ICLUSIG [Suspect]
     Active Substance: PONATINIB
     Dosage: 30 MG, UNK
     Route: 048

REACTIONS (9)
  - Acute lymphocytic leukaemia recurrent [Recovered/Resolved]
  - Cytomegalovirus infection [Unknown]
  - Liver function test abnormal [Not Recovered/Not Resolved]
  - Diabetes mellitus [Unknown]
  - Dry skin [Unknown]
  - Thrombocytopenia [Unknown]
  - Acute graft versus host disease in liver [Unknown]
  - Chronic graft versus host disease in liver [Unknown]
  - Hepatotoxicity [Unknown]

NARRATIVE: CASE EVENT DATE: 201406
